FAERS Safety Report 14867501 (Version 4)
Quarter: 2019Q4

REPORT INFORMATION
  Report Type: Spontaneous
  Country: US (occurrence: US)
  Receive Date: 20180508
  Receipt Date: 20191022
  Transmission Date: 20200122
  Serious: Yes (Other)
  Sender: FDA-Public Use
  Company Number: US-ASTRAZENECA-2018SE54881

PATIENT
  Age: 23967 Day
  Sex: Female

DRUGS (38)
  1. SERROUS ZOLFATE [Concomitant]
     Indication: ANAEMIA
  2. ALPRAVOLAM [Concomitant]
     Indication: DEPRESSION
     Dates: start: 20140905
  3. BITALOPRAM HYDROBROMIDE [Concomitant]
     Indication: ANXIETY
     Dates: start: 20180222
  4. VITAMINS [Concomitant]
     Active Substance: VITAMINS
     Indication: ROUTINE HEALTH MAINTENANCE
  5. PRILOSEC [Suspect]
     Active Substance: OMEPRAZOLE MAGNESIUM
     Indication: GASTROOESOPHAGEAL REFLUX DISEASE
     Dosage: OMEPRAZOLE
     Route: 065
     Dates: start: 2016, end: 2018
  6. ELIQUISE [Concomitant]
     Indication: ATRIAL FIBRILLATION
     Dates: start: 20171011
  7. NEXIUM [Suspect]
     Active Substance: ESOMEPRAZOLE MAGNESIUM
     Indication: GASTROOESOPHAGEAL REFLUX DISEASE
     Route: 048
     Dates: start: 2014
  8. PREVACID 24 HR [Suspect]
     Active Substance: LANSOPRAZOLE
     Route: 065
  9. LORATADINE. [Concomitant]
     Active Substance: LORATADINE
  10. POTASSIUM [Concomitant]
     Active Substance: POTASSIUM
     Indication: ILL-DEFINED DISORDER
     Dates: start: 20180410
  11. LORAZEPAM. [Concomitant]
     Active Substance: LORAZEPAM
  12. NEXIUM 24HR [Suspect]
     Active Substance: ESOMEPRAZOLE MAGNESIUM
     Indication: GASTROOESOPHAGEAL REFLUX DISEASE
     Route: 048
     Dates: start: 2014
  13. PRILOSEC OTC [Suspect]
     Active Substance: OMEPRAZOLE MAGNESIUM
     Route: 048
  14. CALCITRIOL. [Concomitant]
     Active Substance: CALCITRIOL
  15. RANITIDINE HYDROCHLORIDE. [Concomitant]
     Active Substance: RANITIDINE HYDROCHLORIDE
     Indication: GASTROOESOPHAGEAL REFLUX DISEASE
     Dates: start: 20160211
  16. BITALOPRAM HYDROBROMIDE [Concomitant]
     Indication: DEPRESSION
     Dates: start: 20180222
  17. IPRATROPIUM DROMIDE [Concomitant]
     Indication: CHRONIC OBSTRUCTIVE PULMONARY DISEASE
     Dosage: .02
     Dates: start: 20170517
  18. TORSEMIBE [Concomitant]
     Indication: OEDEMA
     Dates: start: 20170512
  19. VITAMIN D2 [Concomitant]
     Active Substance: ERGOCALCIFEROL
     Indication: VITAMIN D DEFICIENCY
  20. PRILOSEC [Suspect]
     Active Substance: OMEPRAZOLE MAGNESIUM
     Indication: GASTROOESOPHAGEAL REFLUX DISEASE
     Route: 048
     Dates: start: 2014
  21. PROTONIX [Suspect]
     Active Substance: PANTOPRAZOLE SODIUM
     Route: 065
  22. ASPIRIN. [Concomitant]
     Active Substance: ASPIRIN
  23. METOPROLOL. [Concomitant]
     Active Substance: METOPROLOL
  24. FOLIC ACID. [Concomitant]
     Active Substance: FOLIC ACID
     Indication: ANAEMIA
  25. DILTIAZEM HCI [Concomitant]
     Indication: CHRONIC KIDNEY DISEASE
     Dates: start: 20190617
  26. RANITIDINE. [Concomitant]
     Active Substance: RANITIDINE
     Indication: GASTROOESOPHAGEAL REFLUX DISEASE
     Dates: start: 20160211
  27. PROAIR HFA [Concomitant]
     Active Substance: ALBUTEROL SULFATE
  28. ACCUPRIL [Concomitant]
     Active Substance: QUINAPRIL HYDROCHLORIDE
  29. BILTIAZEM [Concomitant]
     Indication: CARDIAC FAILURE CONGESTIVE
     Dates: start: 20171120
  30. PREVACID [Suspect]
     Active Substance: LANSOPRAZOLE
     Route: 065
  31. DEXILANT [Suspect]
     Active Substance: DEXLANSOPRAZOLE
     Route: 065
  32. MUCINEX [Concomitant]
     Active Substance: GUAIFENESIN
     Indication: RHINITIS ALLERGIC
     Dates: start: 20180424
  33. ALPRAVOLAM [Concomitant]
     Indication: ANXIETY
     Dates: start: 20140905
  34. ALBUTEROL. [Concomitant]
     Active Substance: ALBUTEROL
     Indication: CHRONIC OBSTRUCTIVE PULMONARY DISEASE
     Dates: start: 20170517
  35. ATORVASCATIN [Concomitant]
     Indication: BLOOD CALCIUM ABNORMAL
     Dates: start: 20170912
  36. HYDROCODONE [Concomitant]
     Active Substance: HYDROCODONE
  37. TRAMAVOL [Concomitant]
     Indication: BACK PAIN
     Dates: start: 20150407
  38. SIMBICORT [Concomitant]
     Active Substance: BUDESONIDE\FORMOTEROL FUMARATE
     Indication: CHRONIC OBSTRUCTIVE PULMONARY DISEASE
     Dates: start: 20140225

REACTIONS (7)
  - End stage renal disease [Unknown]
  - Renal injury [Unknown]
  - Rebound acid hypersecretion [Unknown]
  - Chronic kidney disease [Not Recovered/Not Resolved]
  - Renal failure [Unknown]
  - Tubulointerstitial nephritis [Unknown]
  - Acute kidney injury [Unknown]

NARRATIVE: CASE EVENT DATE: 20140327
